FAERS Safety Report 17082221 (Version 1)
Quarter: 2019Q4

REPORT INFORMATION
  Report Type: Report from Study
  Country: CA (occurrence: CA)
  Receive Date: 20191127
  Receipt Date: 20191127
  Transmission Date: 20200122
  Serious: Yes (Other)
  Sender: FDA-Public Use
  Company Number: CA-ROCHE-1665008

PATIENT
  Age: 66 Year
  Sex: Male
  Weight: 86 kg

DRUGS (7)
  1. ESBRIET [Suspect]
     Active Substance: PIRFENIDONE
     Route: 048
     Dates: start: 20151116
  2. ESBRIET [Suspect]
     Active Substance: PIRFENIDONE
     Indication: IDIOPATHIC PULMONARY FIBROSIS
     Route: 048
     Dates: start: 20151109
  3. SPIRIVA [Concomitant]
     Active Substance: TIOTROPIUM BROMIDE MONOHYDRATE
  4. OXYGEN. [Concomitant]
     Active Substance: OXYGEN
     Dosage: SUPPLEMENTAL O2 AT 5 L/MIN
     Route: 065
  5. VENTOLIN [Concomitant]
     Active Substance: ALBUTEROL SULFATE
  6. ESBRIET [Suspect]
     Active Substance: PIRFENIDONE
     Dosage: RESTARTED (DOSAGE UNKNOWN)
     Route: 048
  7. SALBUTAMOL [Concomitant]
     Active Substance: ALBUTEROL

REACTIONS (18)
  - Weight decreased [Recovered/Resolved]
  - Non-high-density lipoprotein cholesterol increased [Unknown]
  - Pulmonary hypertension [Unknown]
  - Dyspepsia [Unknown]
  - Oxygen saturation decreased [Unknown]
  - Cough [Not Recovered/Not Resolved]
  - Wheezing [Not Recovered/Not Resolved]
  - Gamma-glutamyltransferase increased [Unknown]
  - Dizziness [Unknown]
  - Lung diffusion test decreased [Unknown]
  - Nasopharyngitis [Not Recovered/Not Resolved]
  - Vomiting [Unknown]
  - Cyanosis [Unknown]
  - Influenza [Recovered/Resolved]
  - Pulmonary function test decreased [Unknown]
  - Dyspnoea exertional [Not Recovered/Not Resolved]
  - Aspartate aminotransferase increased [Unknown]
  - Low density lipoprotein increased [Unknown]

NARRATIVE: CASE EVENT DATE: 20151116
